FAERS Safety Report 4380048-6 (Version None)
Quarter: 2004Q2

REPORT INFORMATION
  Report Type: 
  Country: None (occurrence: None)
  Receive Date: 20040614
  Receipt Date: 20040602
  Transmission Date: 20050107
  Serious: Yes (Hospitalization)
  Sender: FDA-Public Use
  Company Number: 200404749

PATIENT
  Age: 10 Year
  Sex: Male

DRUGS (4)
  1. BOTOX [Suspect]
     Indication: DIPLEGIA
     Dosage: 300 UNITS PRN IM
     Route: 030
  2. ALVEDON [Concomitant]
  3. MORFIN [Concomitant]
  4. MIDAZOLAM HCL [Concomitant]

REACTIONS (8)
  - DIFFICULTY IN WALKING [None]
  - DIZZINESS [None]
  - DYSPNOEA [None]
  - FATIGUE [None]
  - GRIP STRENGTH DECREASED [None]
  - MUSCULAR WEAKNESS [None]
  - NAUSEA [None]
  - VISUAL DISTURBANCE [None]
